FAERS Safety Report 9133345 (Version 3)
Quarter: 2013Q2

REPORT INFORMATION
  Report Type: Spontaneous
  Country: DK (occurrence: DK)
  Receive Date: 20130125
  Receipt Date: 20130430
  Transmission Date: 20140414
  Serious: Yes (Hospitalization, Disabling, Other)
  Sender: FDA-Public Use
  Company Number: PHHY2011DK104050

PATIENT
  Age: 25 Year
  Sex: Female

DRUGS (1)
  1. SANDIMMUN [Suspect]
     Indication: NEPHROTIC SYNDROME
     Dosage: 100 MG, BID
     Dates: start: 20100104, end: 20100217

REACTIONS (26)
  - Impaired work ability [Not Recovered/Not Resolved]
  - Pain of skin [Not Recovered/Not Resolved]
  - Vision blurred [Unknown]
  - Diplopia [Unknown]
  - Lacrimation increased [Unknown]
  - Foreign body sensation in eyes [Unknown]
  - Eye swelling [Unknown]
  - Benign intracranial hypertension [Recovering/Resolving]
  - Sensation of heaviness [Not Recovered/Not Resolved]
  - Headache [Not Recovered/Not Resolved]
  - Visual impairment [Not Recovered/Not Resolved]
  - Nausea [Not Recovered/Not Resolved]
  - Vomiting [Not Recovered/Not Resolved]
  - Dizziness [Not Recovered/Not Resolved]
  - Cold sweat [Recovered/Resolved]
  - Pupils unequal [Not Recovered/Not Resolved]
  - Disturbance in attention [Not Recovered/Not Resolved]
  - Sensory disturbance [Recovered/Resolved]
  - Intracranial pressure increased [Recovering/Resolving]
  - Papilloedema [Recovering/Resolving]
  - Photosensitivity reaction [Recovered/Resolved with Sequelae]
  - Visual field defect [Recovered/Resolved with Sequelae]
  - Photophobia [Recovered/Resolved with Sequelae]
  - Paraesthesia [Recovering/Resolving]
  - Eye pain [Unknown]
  - Visual acuity reduced [Unknown]
